FAERS Safety Report 15048113 (Version 1)
Quarter: 2018Q3

REPORT INFORMATION
  Report Type: Report from Study
  Country: ES (occurrence: ES)
  Receive Date: 20180622
  Receipt Date: 20180622
  Transmission Date: 20181010
  Serious: Yes (Hospitalization)
  Sender: FDA-Public Use
  Company Number: ES-TEVA-2018-ES-911945

PATIENT
  Age: 86 Year
  Sex: Female

DRUGS (7)
  1. TRAMADOL. [Suspect]
     Active Substance: TRAMADOL
     Dosage: 1?1?1
     Route: 048
     Dates: start: 20170623, end: 20170701
  2. ADIRO 100 MG COMPRIMIDOS GASTRORRESISTENTES EFG , 30 COMPRIMIDOS [Concomitant]
     Active Substance: ASPIRIN
     Dosage: 0?1?0
     Route: 048
     Dates: start: 20090101
  3. EUTIROX  75 MICROGRAMOS COMPRIMIDOS , 100 COMPRIMIDOS [Concomitant]
     Dosage: 1 CP DIA
     Route: 048
     Dates: start: 20090101
  4. HIDROFEROL 0,266 MG CAPSULAS BLANDAS ,10 C?PSULAS (BLISTER  PVC/PVDC?AL [Suspect]
     Active Substance: CALCIFEDIOL
     Dosage: 1 DAY (DOSE ERROR)
     Route: 048
     Dates: start: 20170623, end: 20170701
  5. ATORVASTATINA (7400A) [Concomitant]
     Active Substance: ATORVASTATIN
     Dosage: 40 MG DIA
     Route: 048
     Dates: start: 20090101
  6. BISOPROLOL AUROVITAS 2,5 MG COMPRIMIDOS RECUBIERTOS CON PELICULA EFG, [Concomitant]
     Dosage: 1?0?0
     Route: 048
     Dates: start: 20090101
  7. IXIA PLUS 40 MG/12,5 MG COMPRIMIDOS RECUBIERTOS CON PELICULA, 28 COMPR [Concomitant]
     Dosage: 1?0?0
     Route: 048
     Dates: start: 20090101

REACTIONS (6)
  - Hypomagnesaemia [Recovered/Resolved with Sequelae]
  - Acute kidney injury [Recovered/Resolved with Sequelae]
  - Incorrect dose administered [Recovered/Resolved with Sequelae]
  - Confusional state [Recovered/Resolved]
  - Hypokalaemia [Recovered/Resolved with Sequelae]
  - Hypercalcaemia [Recovered/Resolved]

NARRATIVE: CASE EVENT DATE: 20170623
